FAERS Safety Report 16936829 (Version 2)
Quarter: 2019Q4

REPORT INFORMATION
  Report Type: Spontaneous
  Country: DE (occurrence: DE)
  Receive Date: 20191018
  Receipt Date: 20191211
  Transmission Date: 20200122
  Serious: Yes (Other)
  Sender: FDA-Public Use
  Company Number: NVSC2019DE007785

PATIENT
  Sex: Female

DRUGS (1)
  1. ZOMETA [Suspect]
     Active Substance: ZOLEDRONIC ACID
     Indication: OSTEOPOROSIS
     Dosage: UNK UNK, QMO
     Route: 042

REACTIONS (4)
  - Tooth loss [Unknown]
  - Product use in unapproved indication [Unknown]
  - Osteonecrosis of jaw [Unknown]
  - Pain [Unknown]
